FAERS Safety Report 15321742 (Version 1)
Quarter: 2018Q3

REPORT INFORMATION
  Report Type: Spontaneous
  Country: US (occurrence: US)
  Receive Date: 20180827
  Receipt Date: 20180827
  Transmission Date: 20181010
  Serious: No
  Sender: FDA-Public Use
  Company Number: US-SUNOVION-2018SUN003246

PATIENT
  Age: 17 Year
  Sex: Female

DRUGS (5)
  1. LATUDA [Suspect]
     Active Substance: LURASIDONE HYDROCHLORIDE
     Indication: BIPOLAR DISORDER
     Dosage: 20 MG, QD
     Route: 048
  2. RISPERDAL [Suspect]
     Active Substance: RISPERIDONE
     Dosage: 2 MG, UNK
     Route: 065
  3. LUVOX [Concomitant]
     Active Substance: FLUVOXAMINE MALEATE
     Dosage: 150 MG, BID
     Route: 065
  4. RISPERDAL [Suspect]
     Active Substance: RISPERIDONE
     Dosage: 1 MG, UNK
     Route: 065
  5. RISPERDAL [Suspect]
     Active Substance: RISPERIDONE
     Dosage: A QUARTER TAB
     Route: 065

REACTIONS (4)
  - Glossodynia [Not Recovered/Not Resolved]
  - Pyrexia [Not Recovered/Not Resolved]
  - Thirst [Not Recovered/Not Resolved]
  - Fatigue [Not Recovered/Not Resolved]
